FAERS Safety Report 12787450 (Version 2)
Quarter: 2016Q4

REPORT INFORMATION
  Report Type: Spontaneous
  Country: BR (occurrence: BR)
  Receive Date: 20160928
  Receipt Date: 20161020
  Transmission Date: 20170207
  Serious: No
  Sender: FDA-Public Use
  Company Number: BR-009507513-1609BRA011926

PATIENT
  Age: 29 Year
  Sex: Female
  Weight: 88 kg

DRUGS (6)
  1. DESALEX [Suspect]
     Active Substance: DESLORATADINE
     Indication: RHINITIS
     Dosage: 1 DOSE ONCE A DAY
     Route: 048
     Dates: start: 2015, end: 2015
  2. ALLEGRA [Concomitant]
     Active Substance: FEXOFENADINE HYDROCHLORIDE
     Dosage: UNK
  3. DESALEX [Suspect]
     Active Substance: DESLORATADINE
     Indication: SINUSITIS
     Dosage: 1 DOSE ONCE A DAY
     Route: 048
     Dates: start: 20160920
  4. AMOXICILLIN. [Concomitant]
     Active Substance: AMOXICILLIN
     Dosage: UNK
  5. SINOT CLAV [Concomitant]
     Dosage: UNK
  6. DESALEX [Suspect]
     Active Substance: DESLORATADINE
     Indication: URTICARIA

REACTIONS (3)
  - Maternal exposure before pregnancy [Unknown]
  - Urticaria [Unknown]
  - Breast feeding [Unknown]

NARRATIVE: CASE EVENT DATE: 20160920
